FAERS Safety Report 7937865-2 (Version None)
Quarter: 2011Q4

REPORT INFORMATION
  Report Type: 
  Country: None (occurrence: None)
  Receive Date: 20111123
  Receipt Date: 20111117
  Transmission Date: 20120403
  Serious: Yes (Hospitalization)
  Sender: FDA-Public Use
  Company Number: NZ-JNJFOC-20100604535

PATIENT
  Sex: Male
  Weight: 101 kg

DRUGS (8)
  1. GOLIMUMAB [Suspect]
     Indication: COLITIS ULCERATIVE
     Route: 058
     Dates: start: 20100525
  2. FLUTICASONE PROPIONATE [Concomitant]
     Route: 055
  3. CANNABIS [Concomitant]
     Dates: start: 20060101, end: 20100818
  4. CODEINE PHOSPHATE [Concomitant]
     Indication: COLITIS ULCERATIVE
     Route: 048
  5. ACETAMINOPHEN W/ CODEINE [Concomitant]
  6. MORPHINE SULFATE [Concomitant]
     Dates: start: 20100222
  7. GOLIMUMAB [Suspect]
     Route: 058
     Dates: start: 20090820
  8. VENTOLIN [Concomitant]
     Route: 055

REACTIONS (1)
  - INTERVERTEBRAL DISCITIS [None]
